FAERS Safety Report 12010786 (Version 1)
Quarter: 2016Q1

REPORT INFORMATION
  Report Type: Spontaneous
  Country: US (occurrence: US)
  Receive Date: 20160205
  Receipt Date: 20160205
  Transmission Date: 20160526
  Serious: Yes (Hospitalization)
  Sender: FDA-Public Use
  Company Number: PHHY2014US183916

PATIENT
  Age: 30 Year
  Sex: Female

DRUGS (1)
  1. ONDANSETRON [Suspect]
     Active Substance: ONDANSETRON
     Indication: HYPEREMESIS GRAVIDARUM
     Dosage: 4-8 MG, 2-3 TIMES DAILY
     Route: 065

REACTIONS (7)
  - Maternal exposure during pregnancy [Unknown]
  - Hypercalciuria [Unknown]
  - Muscular weakness [Unknown]
  - Hypocalcaemia [Unknown]
  - Bartter^s syndrome [Recovered/Resolved]
  - Blood potassium decreased [Recovered/Resolved]
  - Urine potassium increased [Unknown]
